FAERS Safety Report 21324877 (Version 3)
Quarter: 2022Q4

REPORT INFORMATION
  Report Type: Spontaneous
  Country: CZ (occurrence: CZ)
  Receive Date: 20220912
  Receipt Date: 20221004
  Transmission Date: 20230113
  Serious: Yes (Other)
  Sender: FDA-Public Use
  Company Number: CZ-VERTEX PHARMACEUTICALS-2022-013320

PATIENT
  Age: 7 Year
  Sex: Male
  Weight: 28 kg

DRUGS (3)
  1. ELEXACAFTOR\IVACAFTOR\TEZACAFTOR [Suspect]
     Active Substance: ELEXACAFTOR\IVACAFTOR\TEZACAFTOR
     Indication: Cystic fibrosis
     Dosage: (37.5 MG IVA/25 MG TEZA/50 MG ELEXA) TWICE DAILY
     Route: 048
     Dates: start: 20220606, end: 20220905
  2. KALYDECO [Suspect]
     Active Substance: IVACAFTOR
     Indication: Cystic fibrosis
     Dosage: (75 MG IVA) 1 TABLET EVERY 12 HOURS
     Route: 048
     Dates: start: 20220606, end: 20220905
  3. PANCRELIPASE [Concomitant]
     Active Substance: PANCRELIPASE
     Indication: Pancreatic failure
     Route: 048
     Dates: start: 20140427

REACTIONS (4)
  - Epilepsy [Recovered/Resolved]
  - Tic [Unknown]
  - Muscle twitching [Recovered/Resolved]
  - Nystagmus [Recovered/Resolved]

NARRATIVE: CASE EVENT DATE: 20220801
